FAERS Safety Report 6134147-9 (Version None)
Quarter: 2009Q1

REPORT INFORMATION
  Report Type: 
  Country: None (occurrence: None)
  Receive Date: 20090326
  Receipt Date: 20090318
  Transmission Date: 20090719
  Serious: Yes (Life-Threatening)
  Sender: FDA-Public Use
  Company Number: FR-SANOFI-SYNTHELABO-A02200803714

PATIENT
  Sex: Female

DRUGS (6)
  1. ACUPAN [Concomitant]
     Indication: DRUG USE FOR UNKNOWN INDICATION
     Route: 042
     Dates: end: 20081111
  2. ACUPAN [Concomitant]
     Route: 042
     Dates: start: 20081112
  3. ADALAT [Concomitant]
     Indication: VASODILATATION
     Dosage: UNK
     Route: 065
     Dates: start: 20061001, end: 20081103
  4. ACETAMINOPHEN [Concomitant]
     Indication: DRUG USE FOR UNKNOWN INDICATION
     Route: 048
  5. ILOMEDINE [Suspect]
     Indication: EXTREMITY NECROSIS
     Dosage: 1.5 MG/KG/MIN
     Route: 042
     Dates: start: 20081028, end: 20081101
  6. PLAQUENIL [Suspect]
     Indication: MIXED CONNECTIVE TISSUE DISEASE
     Dosage: POSOLOGY EVOLVING
     Route: 048
     Dates: end: 20081101

REACTIONS (6)
  - EPISTAXIS [None]
  - HAEMATURIA [None]
  - HAEMOLYTIC ANAEMIA [None]
  - PURPURA [None]
  - THROMBOCYTOPENIA [None]
  - THROMBOTIC THROMBOCYTOPENIC PURPURA [None]
